FAERS Safety Report 23513516 (Version 1)
Quarter: 2024Q1

REPORT INFORMATION
  Report Type: Spontaneous
  Country: JP (occurrence: JP)
  Receive Date: 20240212
  Receipt Date: 20240212
  Transmission Date: 20240410
  Serious: Yes (Life-Threatening, Hospitalization, Other)
  Sender: FDA-Public Use
  Company Number: JP-STRIDES ARCOLAB LIMITED-2024SP001495

PATIENT
  Age: 45 Year
  Sex: Male

DRUGS (15)
  1. VANCOMYCIN [Suspect]
     Active Substance: VANCOMYCIN
     Indication: Anti-infective therapy
     Dosage: UNK
     Route: 065
  2. FAVIPIRAVIR [Suspect]
     Active Substance: FAVIPIRAVIR
     Indication: COVID-19
     Dosage: 3200 MILLIGRAM PER DAY
     Route: 065
  3. FAVIPIRAVIR [Suspect]
     Active Substance: FAVIPIRAVIR
     Dosage: 1200 MILLIGRAM PER DAY
     Route: 065
  4. MEROPENEM [Suspect]
     Active Substance: MEROPENEM
     Indication: Anti-infective therapy
     Dosage: UNK
     Route: 065
  5. CYCLOSPORINE [Suspect]
     Active Substance: CYCLOSPORINE
     Indication: Haemophagocytic lymphohistiocytosis
     Dosage: UNK
     Route: 065
  6. LANSOPRAZOLE [Suspect]
     Active Substance: LANSOPRAZOLE
     Indication: Product used for unknown indication
     Dosage: 15 MILLIGRAM PER DAY
     Route: 065
  7. LANTHANUM CARBONATE [Suspect]
     Active Substance: LANTHANUM CARBONATE
     Indication: End stage renal disease
     Dosage: 1500 MILLIGRAM PER DAY
     Route: 048
  8. TETRAFERRIC TRICITRATE DECAHYDRATE [Suspect]
     Active Substance: TETRAFERRIC TRICITRATE DECAHYDRATE
     Indication: End stage renal disease
     Dosage: 750 MILLIGRAM
     Route: 065
  9. DEXAMETHASONE [Suspect]
     Active Substance: DEXAMETHASONE
     Indication: COVID-19
     Dosage: 6.6 MILLIGRAM/DAY
     Route: 065
  10. LEVOFLOXACIN [Suspect]
     Active Substance: LEVOFLOXACIN
     Indication: Anti-infective therapy
     Dosage: UNK
     Route: 065
  11. MICAFUNGIN [Suspect]
     Active Substance: MICAFUNGIN SODIUM
     Indication: Anti-infective therapy
     Dosage: UNK
     Route: 065
  12. AMPHOTERICIN B [Suspect]
     Active Substance: AMPHOTERICIN B
     Indication: Anti-infective therapy
     Dosage: UNK
     Route: 065
  13. AMPICILLIN SODIUM\SULBACTAM SODIUM [Suspect]
     Active Substance: AMPICILLIN SODIUM\SULBACTAM SODIUM
     Indication: Anti-infective therapy
     Dosage: UNK
     Route: 065
  14. PIPERACILLIN SODIUM\TAZOBACTAM SODIUM [Suspect]
     Active Substance: PIPERACILLIN SODIUM\TAZOBACTAM SODIUM
     Indication: Anti-infective therapy
     Dosage: UNK
     Route: 065
  15. METHYLPREDNISOLONE [Suspect]
     Active Substance: METHYLPREDNISOLONE
     Indication: Acute respiratory distress syndrome
     Dosage: UNK (PULSE THERAPY)
     Route: 065

REACTIONS (3)
  - Myelosuppression [Unknown]
  - Drug ineffective [Unknown]
  - Off label use [Unknown]
